FAERS Safety Report 17974481 (Version 1)
Quarter: 2020Q3

REPORT INFORMATION
  Report Type: Spontaneous
  Country: US (occurrence: US)
  Receive Date: 20200702
  Receipt Date: 20200702
  Transmission Date: 20201103
  Serious: Yes (Disabling)
  Sender: FDA-Public Use
  Company Number: None

PATIENT
  Age: 16 Year
  Sex: Female
  Weight: 56.7 kg

DRUGS (5)
  1. MONTELUKAST [Suspect]
     Active Substance: MONTELUKAST SODIUM
     Indication: MULTIPLE ALLERGIES
     Dosage: ?          QUANTITY:1 TABLET(S);?
     Route: 048
     Dates: start: 20061001, end: 20200520
  2. CLARITIN [Concomitant]
     Active Substance: LORATADINE
  3. MELATONIN [Concomitant]
     Active Substance: MELATONIN
  4. FLONASE [Concomitant]
     Active Substance: FLUTICASONE PROPIONATE
  5. CLONAZEPAM. [Concomitant]
     Active Substance: CLONAZEPAM

REACTIONS (6)
  - Crying [None]
  - Insomnia [None]
  - Drug ineffective [None]
  - Anxiety [None]
  - Tremor [None]
  - Mental status changes [None]

NARRATIVE: CASE EVENT DATE: 20200515
